FAERS Safety Report 25852050 (Version 1)
Quarter: 2025Q3

REPORT INFORMATION
  Report Type: Spontaneous
  Country: GB (occurrence: GB)
  Receive Date: 20250926
  Receipt Date: 20250926
  Transmission Date: 20251020
  Serious: Yes (Death, Other)
  Sender: NORDIC PHARMA
  Company Number: GB-MHRA-36625325

PATIENT
  Sex: Female

DRUGS (1)
  1. METHOTREXATE [Suspect]
     Active Substance: METHOTREXATE
     Indication: Product used for unknown indication
     Route: 065

REACTIONS (9)
  - Seizure [Unknown]
  - Cognitive disorder [Unknown]
  - Death [Fatal]
  - Alopecia [Unknown]
  - White blood cell disorder [Unknown]
  - Fatigue [Unknown]
  - Weight decreased [Unknown]
  - Platelet disorder [Unknown]
  - Contusion [Unknown]
